FAERS Safety Report 18451182 (Version 2)
Quarter: 2020Q4

REPORT INFORMATION
  Report Type: Spontaneous
  Country: US (occurrence: US)
  Receive Date: 20201030
  Receipt Date: 20201116
  Transmission Date: 20210114
  Serious: No
  Sender: FDA-Public Use
  Company Number: US-ALKERMES INC.-ALK-2020-004732

PATIENT
  Sex: Female
  Weight: 83.9 kg

DRUGS (1)
  1. VIVITROL [Suspect]
     Active Substance: NALTREXONE
     Indication: DRUG DEPENDENCE
     Dosage: 380 MILLIGRAM, QMO
     Route: 030
     Dates: start: 20201022, end: 20201022

REACTIONS (8)
  - Urinary incontinence [Recovered/Resolved]
  - Hypersensitivity [Recovered/Resolved]
  - Muscle rigidity [Recovered/Resolved]
  - Urticaria [Recovered/Resolved]
  - Withdrawal syndrome [Recovered/Resolved]
  - Tremor [Recovered/Resolved]
  - Feeling cold [Recovered/Resolved]
  - Hyperhidrosis [Recovered/Resolved]

NARRATIVE: CASE EVENT DATE: 20201022
